FAERS Safety Report 10994938 (Version 4)
Quarter: 2015Q2

REPORT INFORMATION
  Report Type: Spontaneous
  Country: JP (occurrence: JP)
  Receive Date: 20150407
  Receipt Date: 20150429
  Transmission Date: 20150821
  Serious: Yes (Life-Threatening, Hospitalization, Other)
  Sender: FDA-Public Use
  Company Number: JP-ELI_LILLY_AND_COMPANY-JP201503010412

PATIENT
  Age: 19 Year
  Sex: Male
  Weight: 62 kg

DRUGS (4)
  1. ROHYPNOL [Concomitant]
     Active Substance: FLUNITRAZEPAM
     Indication: SLEEP DISORDER
     Dosage: 1 MG, QD
     Route: 048
  2. QUETIAPINE FUMARATE. [Suspect]
     Active Substance: QUETIAPINE FUMARATE
     Indication: SCHIZOPHRENIA
     Dosage: 200 MG, QD
     Route: 048
     Dates: start: 20140501, end: 20150327
  3. QUETIAPINE FUMARATE. [Suspect]
     Active Substance: QUETIAPINE FUMARATE
     Dosage: 100 MG, QD, BEFORE BEDTIME
     Route: 048
  4. STRATTERA [Suspect]
     Active Substance: ATOMOXETINE HYDROCHLORIDE
     Indication: ATTENTION DEFICIT/HYPERACTIVITY DISORDER
     Dosage: 110 MG, QD
     Route: 048
     Dates: start: 20121101, end: 20150325

REACTIONS (3)
  - Neuroleptic malignant syndrome [Recovered/Resolved]
  - Agitation [Recovered/Resolved]
  - Liver disorder [Recovered/Resolved]

NARRATIVE: CASE EVENT DATE: 20150324
